FAERS Safety Report 15556642 (Version 2)
Quarter: 2019Q3

REPORT INFORMATION
  Report Type: Spontaneous
  Country: CA (occurrence: CA)
  Receive Date: 20181026
  Receipt Date: 20190709
  Transmission Date: 20191004
  Serious: Yes (Other)
  Sender: FDA-Public Use
  Company Number: CA-TEVA-2018-CA-964864

PATIENT
  Age: 80 Year
  Sex: Female

DRUGS (14)
  1. SAXAGLIPTIN HYDROCHLORIDE. [Concomitant]
     Active Substance: SAXAGLIPTIN HYDROCHLORIDE
  2. ACTONEL [Concomitant]
     Active Substance: RISEDRONATE SODIUM
  3. FLONASE ALLERGY RELIEF [Concomitant]
     Active Substance: FLUTICASONE PROPIONATE
  4. RATIO-ATENOLOL [Suspect]
     Active Substance: ATENOLOL
     Indication: CORONARY ARTERY DISEASE
     Dosage: 50 MILLIGRAM DAILY;
  5. CLOPIDOGREL [Concomitant]
     Active Substance: CLOPIDOGREL BISULFATE
  6. NITROLINGUAL PUMPSPRAY [Concomitant]
     Active Substance: NITROGLYCERIN
  7. CODEINE [Concomitant]
     Active Substance: CODEINE
  8. DIOVAN [Concomitant]
     Active Substance: VALSARTAN
  9. FERROUS FUMARATE [Concomitant]
     Active Substance: FERROUS FUMARATE
  10. CODEINE PHOSPHATE [Concomitant]
     Active Substance: CODEINE PHOSPHATE
  11. LODALIS FILM-COATED TABLETS [Concomitant]
     Active Substance: COLESEVELAM HYDROCHLORIDE
  12. ONGLYZA [Concomitant]
     Active Substance: SAXAGLIPTIN HYDROCHLORIDE
  13. PLAVIX [Concomitant]
     Active Substance: CLOPIDOGREL BISULFATE
  14. PREVACID [Concomitant]
     Active Substance: LANSOPRAZOLE

REACTIONS (4)
  - Chest discomfort [Unknown]
  - Dyspepsia [Unknown]
  - Product substitution issue [Unknown]
  - Dyspnoea [Unknown]
